FAERS Safety Report 9507645 (Version 1)
Quarter: 2013Q3

REPORT INFORMATION
  Report Type: Spontaneous
  Country: US (occurrence: None)
  Receive Date: 20130906
  Receipt Date: 20130906
  Transmission Date: 20140515
  Serious: No
  Sender: FDA-Public Use
  Company Number: None

PATIENT
  Age: 45 Year
  Sex: Female
  Weight: 71.67 kg

DRUGS (1)
  1. LAMOTRIGINE 100 MG ZYDUS PHAR [Suspect]
     Indication: AFFECTIVE DISORDER
     Route: 048
     Dates: start: 20130828, end: 20130905

REACTIONS (2)
  - Product substitution issue [None]
  - Adverse drug reaction [None]
